FAERS Safety Report 24293207 (Version 1)
Quarter: 2024Q3

REPORT INFORMATION
  Report Type: Spontaneous
  Country: HR (occurrence: HR)
  Receive Date: 20240906
  Receipt Date: 20240906
  Transmission Date: 20241016
  Serious: Yes (Other)
  Sender: AMGEN
  Company Number: HR-AMGEN-HRVSP2024175943

PATIENT
  Sex: Male

DRUGS (6)
  1. ROMIPLOSTIM [Suspect]
     Active Substance: ROMIPLOSTIM
     Indication: Immune thrombocytopenia
     Dosage: 1 MICROGRAM/KILOGRAM, QWK
     Route: 058
  2. ROMIPLOSTIM [Suspect]
     Active Substance: ROMIPLOSTIM
     Dosage: 1.4 MICROGRAM/KILOGRAM, QWK
     Route: 058
  3. ROMIPLOSTIM [Suspect]
     Active Substance: ROMIPLOSTIM
     Dosage: THE DOSE WAS INCREASED TO A MAXIMUM PEDIATRIC DOSE
     Route: 058
  4. Immunoglobulin [Concomitant]
     Dosage: 0.8 MILLIGRAM/KILOGRAM
     Route: 042
  5. PREDNISONE [Concomitant]
     Active Substance: PREDNISONE
     Dosage: 3 MILLIGRAM/KILOGRAM
  6. PREDNISONE [Concomitant]
     Active Substance: PREDNISONE
     Dosage: TAPERING BEGAN ON DAY 5

REACTIONS (1)
  - Immune thrombocytopenia [Recovered/Resolved]
